FAERS Safety Report 4790279-9 (Version None)
Quarter: 2005Q4

REPORT INFORMATION
  Report Type: 
  Country: None (occurrence: None)
  Receive Date: 20051005
  Receipt Date: 20051005
  Transmission Date: 20060501
  Serious: No
  Sender: FDA-Public Use
  Company Number: None

PATIENT
  Age: 58 Year
  Sex: Female
  Weight: 52 kg

DRUGS (6)
  1. WARFARIN [Suspect]
     Indication: ANTICOAGULANT THERAPY
     Dosage: 2MG X1 PO
     Route: 048
  2. ACETAMINOPHEN [Concomitant]
  3. FLUCONAZOLE [Concomitant]
  4. LANSOPRAZOLE [Concomitant]
  5. LEVOTHYROXINE [Concomitant]
  6. MAALOX FAST BLOCKER [Concomitant]

REACTIONS (5)
  - FUNGAEMIA [None]
  - HAEMOPTYSIS [None]
  - INTERNATIONAL NORMALISED RATIO INCREASED [None]
  - RESPIRATORY FAILURE [None]
  - UPPER GASTROINTESTINAL HAEMORRHAGE [None]
